FAERS Safety Report 4305407-9 (Version None)
Quarter: 2004Q1

REPORT INFORMATION
  Report Type: 
  Country: None (occurrence: None)
  Receive Date: 20040226
  Receipt Date: 20031016
  Transmission Date: 20041129
  Serious: Yes (Hospitalization)
  Sender: FDA-Public Use
  Company Number: US-BRISTOL-MYERS SQUIBB COMPANY-12413613

PATIENT
  Age: 79 Year
  Sex: Female

DRUGS (15)
  1. TAXOL [Suspect]
     Indication: LUNG NEOPLASM MALIGNANT
     Route: 042
     Dates: start: 20031010, end: 20031010
  2. CARBOPLATIN [Concomitant]
     Route: 042
  3. MS CONTIN [Concomitant]
     Route: 048
     Dates: start: 20031008
  4. METHADONE HCL [Concomitant]
     Route: 048
     Dates: start: 20031007
  5. ZOFRAN [Concomitant]
     Route: 048
     Dates: start: 20031008
  6. DECADRON [Concomitant]
     Route: 048
     Dates: start: 20031008
  7. NEURONTIN [Concomitant]
     Route: 048
     Dates: start: 20031007
  8. COLACE [Concomitant]
     Route: 048
     Dates: start: 20031007
  9. HYDROCHLOROTHIAZIDE [Concomitant]
     Route: 048
     Dates: start: 20031007
  10. TOPROL-XL [Concomitant]
     Route: 048
     Dates: start: 20031007
  11. LISINOPRIL [Concomitant]
     Route: 048
     Dates: start: 20031007
  12. DEXAMETHASONE [Concomitant]
     Route: 042
  13. ANZEMET [Concomitant]
  14. TAGAMET [Concomitant]
     Route: 042
  15. BENADRYL [Concomitant]
     Route: 042

REACTIONS (1)
  - CONVULSION [None]
